FAERS Safety Report 15664439 (Version 5)
Quarter: 2019Q1

REPORT INFORMATION
  Report Type: Spontaneous
  Country: US (occurrence: US)
  Receive Date: 20181128
  Receipt Date: 20190205
  Transmission Date: 20190417
  Serious: Yes (Hospitalization, Other)
  Sender: FDA-Public Use
  Company Number: US-GLAXOSMITHKLINE-US2018GSK214664

PATIENT
  Sex: Female

DRUGS (6)
  1. PRADAXA [Suspect]
     Active Substance: DABIGATRAN ETEXILATE MESYLATE
     Indication: THROMBOSIS PROPHYLAXIS
     Dosage: UNK
  2. FLOLAN DILUENT PH 12 [Suspect]
     Active Substance: GLYCINE\MANNITOL\SODIUM CHLORIDE
     Dosage: UNK
     Route: 042
     Dates: start: 20180309
  3. FLOLAN DILUENT PH 12 [Suspect]
     Active Substance: GLYCINE\MANNITOL\SODIUM CHLORIDE
     Indication: PULMONARY ARTERIAL HYPERTENSION
     Dosage: UNK
     Dates: start: 20180309
  4. FLOLAN [Suspect]
     Active Substance: EPOPROSTENOL SODIUM
     Indication: PULMONARY ARTERIAL HYPERTENSION
     Dosage: 16 DF, CO
     Dates: start: 20180309
  5. FLOLAN [Suspect]
     Active Substance: EPOPROSTENOL SODIUM
     Dosage: 17 NG/KG/MIN, CO
     Route: 042
     Dates: start: 20180309
  6. FLOLAN DILUENT PH 12 [Suspect]
     Active Substance: GLYCINE\MANNITOL\SODIUM CHLORIDE
     Dosage: UNK
     Route: 042
     Dates: start: 20180309

REACTIONS (13)
  - Blood iron decreased [Unknown]
  - Biopsy rectum [Unknown]
  - Haemorrhoids [Unknown]
  - Thrombosis in device [Unknown]
  - Device alarm issue [Unknown]
  - Rectal ulcer [Unknown]
  - Anal pruritus [Unknown]
  - Lichen sclerosus [Unknown]
  - Catheter placement [Unknown]
  - Anorectal discomfort [Unknown]
  - Diarrhoea [Unknown]
  - Haemorrhoidal haemorrhage [Unknown]
  - Rectal discharge [Unknown]
